FAERS Safety Report 10339723 (Version 1)
Quarter: 2014Q3

REPORT INFORMATION
  Report Type: Spontaneous
  Country: IT (occurrence: None)
  Receive Date: 20140722
  Receipt Date: 20140722
  Transmission Date: 20150326
  Serious: Yes (Hospitalization)
  Sender: FDA-Public Use
  Company Number: 2411622

PATIENT
  Age: 62 Year
  Sex: Male
  Weight: 79 kg

DRUGS (3)
  1. OXALIPLATIN. [Suspect]
     Active Substance: OXALIPLATIN
     Indication: CHEMOTHERAPY
     Dosage: 170 MG MILLIGRAM(S) (TOTAL) INTRVENOUS (NOT OTHEWISE SPECIFIED)
     Route: 042
     Dates: start: 20140213, end: 20140213
  2. 5-FLUOROURACIL /00098801/ [Concomitant]
     Active Substance: FLUOROURACIL
  3. GEMCITABINE [Concomitant]
     Active Substance: GEMCITABINE\GEMCITABINE HYDROCHLORIDE

REACTIONS (6)
  - Hyperpyrexia [None]
  - Blood bilirubin increased [None]
  - Renal failure acute [None]
  - Intravascular haemolysis [None]
  - Haemoglobin decreased [None]
  - Hypotension [None]

NARRATIVE: CASE EVENT DATE: 20140213
